FAERS Safety Report 5222614-1 (Version None)
Quarter: 2007Q1

REPORT INFORMATION
  Report Type: 
  Country: None (occurrence: None)
  Receive Date: 20070124
  Receipt Date: 20070108
  Transmission Date: 20070707
  Serious: Yes (Death, Hospitalization)
  Sender: FDA-Public Use
  Company Number: 2007000061

PATIENT
  Age: 56 Year
  Sex: Male

DRUGS (13)
  1. ERLOTINIB (TABLET) [Suspect]
     Indication: DRUG USE FOR UNKNOWN INDICATION
     Dosage: 150 MG (QD), ORAL
     Route: 048
     Dates: start: 20060923
  2. BEVACIZUMAB (INJECTION FOR INFUSION) [Suspect]
     Indication: DRUG USE FOR UNKNOWN INDICATION
     Dosage: 10 MG/KG, INTRAVENOUS
     Route: 042
     Dates: start: 20060914
  3. DILAUDID [Concomitant]
  4. OXYCONTIN [Concomitant]
  5. VICODIN [Concomitant]
  6. MAGNESIUM CHLORIDE (MAGNESIUM CHLORIDE ANHYDROUS) [Concomitant]
  7. PHENERGAN (PROMETHAZINE HYDROCHLORIDE) [Concomitant]
  8. MARINOL [Concomitant]
  9. TUSSINEX [Concomitant]
  10. REGLAN [Concomitant]
  11. NAPROXEN [Concomitant]
  12. COMPAZINE [Concomitant]
  13. VIAGRA [Concomitant]

REACTIONS (23)
  - ASPIRATION [None]
  - BLOOD CHLORIDE INCREASED [None]
  - BLOOD PRESSURE DECREASED [None]
  - BLOOD SODIUM INCREASED [None]
  - CARBON DIOXIDE DECREASED [None]
  - COAGULOPATHY [None]
  - CONFUSIONAL STATE [None]
  - GASTROINTESTINAL HAEMORRHAGE [None]
  - GENERAL PHYSICAL HEALTH DETERIORATION [None]
  - HAEMATEMESIS [None]
  - HAEMATOCRIT DECREASED [None]
  - HAEMODYNAMIC INSTABILITY [None]
  - HAEMOGLOBIN DECREASED [None]
  - HEPATIC ENCEPHALOPATHY [None]
  - HYPOXIA [None]
  - INFECTION [None]
  - MULTI-ORGAN FAILURE [None]
  - NAUSEA [None]
  - PLATELET COUNT DECREASED [None]
  - PULMONARY OEDEMA [None]
  - REFUSAL OF TREATMENT BY PATIENT [None]
  - VARICES OESOPHAGEAL [None]
  - VOMITING [None]
